FAERS Safety Report 8543831-9 (Version None)
Quarter: 2012Q3

REPORT INFORMATION
  Report Type: 
  Country: None (occurrence: None)
  Receive Date: 20120727
  Receipt Date: 20120724
  Transmission Date: 20120928
  Serious: Yes (Hospitalization)
  Sender: FDA-Public Use
  Company Number: US-PFIZER INC-2012175237

PATIENT

DRUGS (1)
  1. PROTONIX [Suspect]
     Dosage: 40 MG, DAILY
     Route: 048

REACTIONS (1)
  - BILIARY TRACT DISORDER [None]
